FAERS Safety Report 4329482-0 (Version None)
Quarter: 2004Q2

REPORT INFORMATION
  Report Type: 
  Country: None (occurrence: None)
  Receive Date: 20040401
  Receipt Date: 20040324
  Transmission Date: 20050107
  Serious: Yes (Hospitalization)
  Sender: FDA-Public Use
  Company Number: FR-MERCK-0403FRA00101

PATIENT
  Age: 63 Year
  Sex: Female
  Weight: 98 kg

DRUGS (6)
  1. CITALOPRAM HYDROBROMIDE [Concomitant]
     Route: 065
     Dates: end: 20040210
  2. FLUCONAZOLE [Concomitant]
     Indication: ORAL CANDIDIASIS
     Route: 048
     Dates: end: 20040219
  3. STROMECTOL [Suspect]
     Indication: PROPHYLAXIS
     Route: 048
     Dates: start: 20040220, end: 20040220
  4. OFLOXACIN [Suspect]
     Indication: URINARY TRACT INFECTION
     Route: 048
     Dates: start: 20040222, end: 20040225
  5. PAMIDRONATE DISODIUM [Suspect]
     Indication: HYPERCALCAEMIA
     Route: 041
     Dates: start: 20040219, end: 20040219
  6. PREDNISONE [Concomitant]
     Indication: ORAL CANDIDIASIS
     Route: 048
     Dates: start: 20040220

REACTIONS (3)
  - ALANINE AMINOTRANSFERASE INCREASED [None]
  - BLOOD ALKALINE PHOSPHATASE INCREASED [None]
  - HEPATITIS [None]
